FAERS Safety Report 14597565 (Version 1)
Quarter: 2018Q1

REPORT INFORMATION
  Report Type: Spontaneous
  Country: US (occurrence: US)
  Receive Date: 20180305
  Receipt Date: 20180305
  Transmission Date: 20180509
  Serious: Yes (Hospitalization, Other)
  Sender: FDA-Public Use
  Company Number: US-ZYDUS-019159

PATIENT
  Age: 2 Year
  Sex: Female

DRUGS (2)
  1. LEVETIRACETAM. [Suspect]
     Active Substance: LEVETIRACETAM
     Indication: SEIZURE
     Route: 065
  2. ZONISAMIDE. [Suspect]
     Active Substance: ZONISAMIDE
     Indication: SEIZURE
     Route: 065

REACTIONS (18)
  - Scab [Recovering/Resolving]
  - Skin lesion [Recovered/Resolved]
  - Erythema [Recovering/Resolving]
  - Stevens-Johnson syndrome [Recovering/Resolving]
  - Pain [Unknown]
  - Pyrexia [Unknown]
  - Decreased appetite [Unknown]
  - Skin plaque [Recovering/Resolving]
  - Toxic epidermal necrolysis [Recovering/Resolving]
  - Conjunctival hyperaemia [Unknown]
  - Papule [Recovering/Resolving]
  - Blister [Recovering/Resolving]
  - Rash [Recovering/Resolving]
  - Asthenia [Unknown]
  - Macule [Recovering/Resolving]
  - Nikolsky^s sign [Recovering/Resolving]
  - Transaminases increased [Recovered/Resolved]
  - Blood alkaline phosphatase increased [Unknown]
